FAERS Safety Report 10485702 (Version 3)
Quarter: 2014Q4

REPORT INFORMATION
  Report Type: Spontaneous
  Country: TR (occurrence: TR)
  Receive Date: 20141001
  Receipt Date: 20141024
  Transmission Date: 20150528
  Serious: Yes (Death)
  Sender: FDA-Public Use
  Company Number: TR-ROCHE-1468062

PATIENT
  Age: 63 Year
  Sex: Female
  Weight: 76 kg

DRUGS (1)
  1. XELODA [Suspect]
     Active Substance: CAPECITABINE
     Indication: COLORECTAL CANCER
     Route: 048
     Dates: start: 20140814, end: 20140827

REACTIONS (4)
  - Necrotising colitis [Fatal]
  - Gastroenteritis [Fatal]
  - Mucosal inflammation [Fatal]
  - Enteritis [Fatal]

NARRATIVE: CASE EVENT DATE: 20140821
